FAERS Safety Report 6487392-7 (Version None)
Quarter: 2009Q4

REPORT INFORMATION
  Report Type: 
  Country: None (occurrence: None)
  Receive Date: 20091210
  Receipt Date: 20091202
  Transmission Date: 20100525
  Serious: Yes (Other)
  Sender: FDA-Public Use
  Company Number: US-SANOFI-AVENTIS-2009SA006002

PATIENT
  Age: 62 Year
  Sex: Male

DRUGS (8)
  1. PLAVIX [Suspect]
     Indication: STENT PLACEMENT
     Route: 048
  2. LANTUS [Suspect]
     Indication: DIABETES MELLITUS INADEQUATE CONTROL
     Dosage: DOSE:60 UNIT(S)
     Route: 058
     Dates: start: 19990101
  3. ASPIRIN [Concomitant]
     Route: 048
     Dates: start: 19870101
  4. AZOR [Concomitant]
  5. ALL OTHER THERAPEUTIC PRODUCTS [Concomitant]
  6. TIMOLOL [Concomitant]
     Indication: GLAUCOMA
     Dosage: 2 DROPS IN THE MORNING
  7. AZOPT [Concomitant]
     Indication: GLAUCOMA
     Dosage: 2 DROPS IN THE MORNING
  8. ALL OTHER THERAPEUTIC PRODUCTS [Concomitant]
     Indication: GLAUCOMA
     Dosage: 1 DROP IN THE PM

REACTIONS (9)
  - ARRHYTHMIA [None]
  - ASTHENIA [None]
  - BLOOD GLUCOSE INCREASED [None]
  - CAROTID ARTERY INSUFFICIENCY [None]
  - CAROTID ARTERY THROMBOSIS [None]
  - CHEST PAIN [None]
  - DIZZINESS [None]
  - NAUSEA [None]
  - PAIN IN EXTREMITY [None]
